FAERS Safety Report 7010739 (Version 5)
Quarter: 2012Q4

REPORT INFORMATION
  Report Type: 
  Country: CA (occurrence: CA)
  Receive Date: 20090604
  Receipt Date: 20121106
  Transmission Date: 20130627
  Serious: Yes (Death, Hospitalization, Other)
  Sender: FDA-Public Use
  Company Number: PHHY2009CA20531

PATIENT
  Sex: Female

DRUGS (2)
  1. SANDOSTATIN LAR [Suspect]
     Indication: CARCINOID TUMOUR
     Dosage: 30 mg, once a month
     Route: 030
     Dates: start: 20050729
  2. SANDOSTATIN [Suspect]
     Indication: CARCINOID TUMOUR
     Route: 058

REACTIONS (10)
  - Death [Fatal]
  - Fall [Unknown]
  - Abasia [Unknown]
  - Swelling [Unknown]
  - Malaise [Unknown]
  - Cerebral haemorrhage [Unknown]
  - Hypertension [Recovering/Resolving]
  - Diabetes mellitus [Recovering/Resolving]
  - Dyspnoea [Unknown]
  - Malignant neoplasm progression [Unknown]
